FAERS Safety Report 23382612 (Version 3)
Quarter: 2024Q1

REPORT INFORMATION
  Report Type: Report from Study
  Country: PH (occurrence: PH)
  Receive Date: 20240109
  Receipt Date: 20240318
  Transmission Date: 20240409
  Serious: Yes (Death, Hospitalization)
  Sender: FDA-Public Use
  Company Number: PH-OTSUKA-2023_023205

PATIENT
  Age: 66 Year
  Sex: Female

DRUGS (9)
  1. TOLVAPTAN [Suspect]
     Active Substance: TOLVAPTAN
     Indication: Oedema peripheral
     Dosage: 15 MG, QD
     Route: 048
     Dates: start: 202306
  2. TOLVAPTAN [Suspect]
     Active Substance: TOLVAPTAN
     Indication: Spinal cord neoplasm
     Dosage: UNK (15 MG TABLET HALF TABLET EVERY OTHER DAY)
     Route: 048
     Dates: start: 202305
  3. TOLVAPTAN [Suspect]
     Active Substance: TOLVAPTAN
     Dosage: UNK (15MG HALF TABLET EVERY MONDAY WEDNESDAY, AND FRIDAY)
     Route: 065
  4. TOLVAPTAN [Suspect]
     Active Substance: TOLVAPTAN
     Dosage: UNK
     Route: 048
     Dates: end: 20240229
  5. APIXABAN [Concomitant]
     Active Substance: APIXABAN
     Indication: Anticoagulant therapy
     Dosage: UNK
     Route: 065
  6. PREGABALIN [Concomitant]
     Active Substance: PREGABALIN
     Indication: Analgesic therapy
     Dosage: UNK
     Route: 065
  7. ONDANSETRON [Concomitant]
     Active Substance: ONDANSETRON
     Indication: Abdominal pain upper
     Dosage: UNK
     Route: 065
  8. OTILONIUM BROMIDE [Concomitant]
     Active Substance: OTILONIUM BROMIDE
     Indication: Abdominal pain upper
     Dosage: UNK
     Route: 065
  9. HERACLENE [Concomitant]
     Indication: Supplementation therapy
     Dosage: UNK
     Route: 065

REACTIONS (10)
  - Death [Fatal]
  - Spinal cord neoplasm [Recovered/Resolved]
  - Chemotherapy [Unknown]
  - Blood disorder [Recovered/Resolved]
  - Movement disorder [Unknown]
  - Swelling [Recovered/Resolved]
  - Anaemia [Unknown]
  - Deep vein thrombosis [Unknown]
  - Wrong technique in product usage process [Unknown]
  - Product use in unapproved indication [Unknown]

NARRATIVE: CASE EVENT DATE: 20230501
